FAERS Safety Report 5486052-9 (Version None)
Quarter: 2007Q4

REPORT INFORMATION
  Report Type: 
  Country: None (occurrence: None)
  Receive Date: 20071015
  Receipt Date: 20071003
  Transmission Date: 20080405
  Serious: Yes (Hospitalization)
  Sender: FDA-Public Use
  Company Number: NL-PFIZER INC-2007083926

PATIENT
  Sex: Female
  Weight: 61 kg

DRUGS (3)
  1. REVATIO [Suspect]
     Indication: PULMONARY HYPERTENSION
     Route: 048
     Dates: start: 20070920, end: 20070927
  2. SINTROM [Concomitant]
     Dates: start: 20070920, end: 20070927
  3. DRUG, UNSPECIFIED [Concomitant]
     Dates: start: 20070827, end: 20070918

REACTIONS (1)
  - THROMBOCYTOPENIA [None]
